FAERS Safety Report 10506688 (Version 2)
Quarter: 2014Q4

REPORT INFORMATION
  Report Type: Spontaneous
  Country: FI (occurrence: FI)
  Receive Date: 20141009
  Receipt Date: 20141020
  Transmission Date: 20150528
  Serious: Yes (Other)
  Sender: FDA-Public Use
  Company Number: FI-TEVA-513362ISR

PATIENT
  Sex: Male

DRUGS (1)
  1. KEFALEX [Suspect]
     Active Substance: CEPHALEXIN
     Route: 048

REACTIONS (2)
  - Drug ineffective [Unknown]
  - Psychotic disorder [Unknown]

NARRATIVE: CASE EVENT DATE: 2014
